FAERS Safety Report 8625432-7 (Version None)
Quarter: 2012Q3

REPORT INFORMATION
  Report Type: 
  Country: None (occurrence: None)
  Receive Date: 20120827
  Receipt Date: 20120817
  Transmission Date: 20120928
  Serious: Yes (Hospitalization)
  Sender: FDA-Public Use
  Company Number: US-ACTELION-A-US2012-63625

PATIENT
  Age: 69 Year
  Sex: Male

DRUGS (1)
  1. TRACLEER [Suspect]
     Indication: PULMONARY ARTERIAL HYPERTENSION
     Dosage: UNK
     Route: 048

REACTIONS (6)
  - DYSPNOEA [None]
  - ATRIAL FIBRILLATION [None]
  - CARDIAC ABLATION [None]
  - PALPITATIONS [None]
  - CARDIAC DISORDER [None]
  - DISEASE COMPLICATION [None]
